APPROVED DRUG PRODUCT: DILTIAZEM HYDROCHLORIDE
Active Ingredient: DILTIAZEM HYDROCHLORIDE
Strength: 360MG
Dosage Form/Route: CAPSULE, EXTENDED RELEASE;ORAL
Application: A206641 | Product #005 | TE Code: AB4
Applicant: ZYDUS PHARMACEUTICALS USA INC
Approved: Aug 11, 2017 | RLD: No | RS: No | Type: RX